FAERS Safety Report 4780369-9 (Version None)
Quarter: 2005Q3

REPORT INFORMATION
  Report Type: 
  Country: None (occurrence: None)
  Receive Date: 20050926
  Receipt Date: 20050926
  Transmission Date: 20060218
  Serious: Yes (Other)
  Sender: FDA-Public Use
  Company Number: None

PATIENT
  Sex: Male
  Weight: 73.9363 kg

DRUGS (5)
  1. LORATADINE [Suspect]
     Indication: RHINITIS ALLERGIC
     Dosage: 10MG  DAILY  PO
     Route: 048
     Dates: start: 20030717, end: 20050628
  2. CYCLOBENZAPRINE HCL [Concomitant]
  3. DOXYCYCLINE [Concomitant]
  4. TRAMADOL [Concomitant]
  5. FLUNISOLIDE [Concomitant]

REACTIONS (2)
  - CHEST WALL PAIN [None]
  - HYPOVENTILATION [None]
